FAERS Safety Report 17950069 (Version 1)
Quarter: 2020Q2

REPORT INFORMATION
  Report Type: Spontaneous
  Country: GB (occurrence: GB)
  Receive Date: 20200626
  Receipt Date: 20200626
  Transmission Date: 20200714
  Serious: Yes (Hospitalization, Other)
  Sender: FDA-Public Use
  Company Number: GB-SA-2020SA153384

PATIENT

DRUGS (1)
  1. ALEMTUZUMAB [Suspect]
     Active Substance: ALEMTUZUMAB
     Indication: RELAPSING-REMITTING MULTIPLE SCLEROSIS
     Dosage: UNK, QCY

REACTIONS (18)
  - Paradoxical drug reaction [Recovered/Resolved]
  - Gait disturbance [Recovered/Resolved]
  - Muscular weakness [Recovered/Resolved]
  - Ophthalmoplegia [Recovered/Resolved]
  - Respiratory disorder [Recovered/Resolved]
  - Diplopia [Recovered/Resolved]
  - Malaise [Recovered/Resolved]
  - Somnolence [Recovered/Resolved]
  - Disorientation [Recovered/Resolved]
  - Communication disorder [Recovered/Resolved]
  - Headache [Recovered/Resolved]
  - Reflexes abnormal [Recovered/Resolved]
  - Autoimmune demyelinating disease [Recovered/Resolved]
  - Demyelination [Recovered/Resolved]
  - Quadriparesis [Recovered/Resolved]
  - Confusional state [Recovered/Resolved]
  - Facial paresis [Recovered/Resolved]
  - Extensor plantar response [Recovered/Resolved]
